FAERS Safety Report 5100835-6 (Version None)
Quarter: 2006Q3

REPORT INFORMATION
  Report Type: 
  Country: None (occurrence: None)
  Receive Date: 20060911
  Receipt Date: 20060831
  Transmission Date: 20061208
  Serious: Yes (Death, Other)
  Sender: FDA-Public Use
  Company Number: US-JNJFOC-20060900312

PATIENT
  Sex: Female

DRUGS (12)
  1. REMICADE [Suspect]
     Indication: RHEUMATOID ARTHRITIS
     Route: 042
  2. FOLIC ACID [Concomitant]
  3. HUMIRA [Concomitant]
  4. ULTRAM [Concomitant]
  5. PREDNISONE [Concomitant]
  6. MULTI-VITAMIN [Concomitant]
  7. HYDROCHLOROTHIAZIDE [Concomitant]
  8. COUMADIN [Concomitant]
  9. CALTRATE [Concomitant]
  10. AZATHIOPRINE [Concomitant]
  11. AMITRIPTYLINE HCL [Concomitant]
  12. AMARYL [Concomitant]

REACTIONS (1)
  - NEOPLASM MALIGNANT [None]
